FAERS Safety Report 11276462 (Version 1)
Quarter: 2015Q2

REPORT INFORMATION
  Report Type: Spontaneous
  Country: US (occurrence: None)
  Receive Date: 20150625
  Receipt Date: 20150625
  Transmission Date: 20150821
  Serious: No
  Sender: FDA-Public Use
  Company Number: A-NJ2015-115805

PATIENT
  Age: 46 Year
  Sex: Female

DRUGS (2)
  1. REMODULIN [Concomitant]
     Active Substance: TREPROSTINIL
  2. OPSUMIT [Suspect]
     Active Substance: MACITENTAN
     Indication: PULMONARY HYPERTENSION
     Route: 048

REACTIONS (11)
  - Infusion site warmth [None]
  - Infusion site induration [None]
  - Nausea [None]
  - Infusion site haemorrhage [None]
  - Infusion site pain [None]
  - Infusion site erythema [None]
  - Infusion site swelling [None]
  - Dizziness [None]
  - Sinus disorder [None]
  - Sinusitis [None]
  - Vomiting [None]

NARRATIVE: CASE EVENT DATE: 20150410
